FAERS Safety Report 9381715 (Version 3)
Quarter: 2013Q3

REPORT INFORMATION
  Report Type: Spontaneous
  Country: US (occurrence: US)
  Receive Date: 20130703
  Receipt Date: 20130902
  Transmission Date: 20140515
  Serious: Yes (Hospitalization, Other)
  Sender: FDA-Public Use
  Company Number: US-PFIZER INC-2013196187

PATIENT
  Age: 51 Year
  Sex: Male
  Weight: 63.49 kg

DRUGS (2)
  1. VIAGRA [Suspect]
     Indication: ERECTILE DYSFUNCTION
     Dosage: 100 MG, AS NEEDED
     Route: 048
  2. ATRIPLA [Concomitant]
     Dosage: UNK

REACTIONS (1)
  - Hernia [Unknown]
